FAERS Safety Report 10391226 (Version 2)
Quarter: 2014Q3

REPORT INFORMATION
  Report Type: Spontaneous
  Country: NG (occurrence: NG)
  Receive Date: 20140818
  Receipt Date: 20140918
  Transmission Date: 20150326
  Serious: Yes (Death)
  Sender: FDA-Public Use
  Company Number: NG-ASTRAZENECA-2014SE60783

PATIENT
  Age: 84 Year
  Sex: Male
  Weight: 79 kg

DRUGS (2)
  1. MERONEM [Suspect]
     Active Substance: MEROPENEM
     Indication: SEPSIS
     Route: 042
     Dates: start: 20140805, end: 20140810
  2. ROCEPHIN [Concomitant]
     Active Substance: CEFTRIAXONE SODIUM
     Indication: SEPSIS
     Route: 042
     Dates: start: 20140807, end: 20140809

REACTIONS (1)
  - Disseminated intravascular coagulation [Fatal]
